FAERS Safety Report 14387605 (Version 1)
Quarter: 2018Q1

REPORT INFORMATION
  Report Type: Spontaneous
  Country: US (occurrence: US)
  Receive Date: 20180115
  Receipt Date: 20180115
  Transmission Date: 20180509
  Serious: Yes (Other)
  Sender: FDA-Public Use
  Company Number: US-SA-2017SA195129

PATIENT
  Sex: Female
  Weight: 68.03 kg

DRUGS (7)
  1. LYRICA [Concomitant]
     Active Substance: PREGABALIN
     Route: 065
  2. NEOSAR [Concomitant]
     Active Substance: CYCLOPHOSPHAMIDE
     Route: 042
  3. TAXOTERE [Suspect]
     Active Substance: DOCETAXEL
     Indication: BREAST CANCER FEMALE
     Route: 051
     Dates: start: 20110727, end: 20110727
  4. TAMOXIFEN [Concomitant]
     Active Substance: TAMOXIFEN
     Route: 065
  5. SIMVASTATIN. [Concomitant]
     Active Substance: SIMVASTATIN
     Route: 065
  6. ARIMIDEX [Concomitant]
     Active Substance: ANASTROZOLE
     Route: 065
  7. TAXOTERE [Suspect]
     Active Substance: DOCETAXEL
     Indication: BREAST CANCER FEMALE
     Route: 051
     Dates: start: 20110407, end: 20110407

REACTIONS (6)
  - Emotional distress [Unknown]
  - Anxiety [Unknown]
  - Psychological trauma [Unknown]
  - Alopecia [Not Recovered/Not Resolved]
  - Pain [Unknown]
  - Impaired quality of life [Unknown]

NARRATIVE: CASE EVENT DATE: 201111
